FAERS Safety Report 15637740 (Version 1)
Quarter: 2018Q4

REPORT INFORMATION
  Report Type: Spontaneous
  Country: CN (occurrence: CN)
  Receive Date: 20181120
  Receipt Date: 20181120
  Transmission Date: 20190205
  Serious: Yes (Hospitalization)
  Sender: FDA-Public Use
  Company Number: CN-BAYER-2018-210527

PATIENT
  Age: 76 Year
  Sex: Female

DRUGS (20)
  1. BAYASPIRIN 100 MG [Suspect]
     Active Substance: ASPIRIN
     Indication: CORONARY ARTERY DISEASE
     Dosage: 1 DF, QD
     Dates: start: 20171125, end: 20180124
  2. CLOPIDOGREL [Concomitant]
     Active Substance: CLOPIDOGREL BISULFATE
     Dosage: 75 MG, QD
     Route: 048
     Dates: start: 20170703, end: 2017
  3. CLOPIDOGREL [Concomitant]
     Active Substance: CLOPIDOGREL BISULFATE
     Dosage: 75 MG, QD
     Dates: start: 20170726
  4. TICAGRELOR. [Concomitant]
     Active Substance: TICAGRELOR
     Dosage: 90 MG, BID
     Dates: start: 20170922, end: 20170926
  5. CLOPIDOGREL [Concomitant]
     Active Substance: CLOPIDOGREL BISULFATE
     Dosage: 75 MG, QD
     Dates: start: 20170919, end: 20170922
  6. ACARBOSE. [Concomitant]
     Active Substance: ACARBOSE
     Dosage: 50 MG, TID
     Route: 048
     Dates: start: 2017
  7. METOPROLOL. [Concomitant]
     Active Substance: METOPROLOL
     Dosage: 47.5 MG, QD
     Route: 048
     Dates: start: 20170703, end: 20171125
  8. INSULIN GLARGINE [Concomitant]
     Active Substance: INSULIN GLARGINE
     Dosage: 16 IU, QD
     Route: 058
     Dates: start: 20170703
  9. BAYASPIRIN 100 MG [Suspect]
     Active Substance: ASPIRIN
     Indication: CORONARY ARTERY DISEASE
     Dosage: 100 MG, QD
     Route: 048
     Dates: start: 20170714, end: 2017
  10. BAYASPIRIN 100 MG [Suspect]
     Active Substance: ASPIRIN
     Indication: CORONARY ARTERY DISEASE
     Dosage: UNK
     Dates: start: 201806
  11. CLOPIDOGREL [Concomitant]
     Active Substance: CLOPIDOGREL BISULFATE
     Dosage: 1 DF, QD
     Dates: start: 20171125, end: 201806
  12. RABEPRAZOLE [Concomitant]
     Active Substance: RABEPRAZOLE
     Dosage: 20 MG, QD
     Route: 048
     Dates: start: 20180124
  13. ACARBOSE. [Concomitant]
     Active Substance: ACARBOSE
     Dosage: 50 MG, BID
     Route: 048
     Dates: start: 20170703, end: 2017
  14. GLICLAZIDE [Concomitant]
     Active Substance: GLICLAZIDE
     Dosage: 60 MG, QD
     Route: 048
     Dates: start: 20170703
  15. BAYASPIRIN 100 MG [Suspect]
     Active Substance: ASPIRIN
     Indication: CORONARY ARTERY DISEASE
     Dosage: 2 DF, QD
     Dates: start: 20171015, end: 2017
  16. CLOPIDOGREL [Concomitant]
     Active Substance: CLOPIDOGREL BISULFATE
     Dosage: 1.5 DF, QD
     Dates: start: 20171015, end: 2017
  17. TICAGRELOR. [Concomitant]
     Active Substance: TICAGRELOR
     Dosage: 90 MG, BID
     Dates: start: 2017, end: 201709
  18. METOPROLOL. [Concomitant]
     Active Substance: METOPROLOL
     Dosage: 0.5 DF, QD
     Dates: start: 20171125
  19. GALENIC /HYDROCHLOROTHIAZIDE/IRBESARTAN/ [Concomitant]
     Dosage: 1 DF, QD
     Route: 048
     Dates: start: 20170703
  20. CILOSTAZOL. [Concomitant]
     Active Substance: CILOSTAZOL
     Dosage: 50 MG, BID
     Route: 048
     Dates: start: 20180130

REACTIONS (17)
  - Chest pain [Recovering/Resolving]
  - Dyspnoea exertional [None]
  - Occult blood positive [Recovered/Resolved]
  - Cardiac discomfort [Not Recovered/Not Resolved]
  - Muscular weakness [None]
  - Chest discomfort [Recovering/Resolving]
  - Dizziness [None]
  - Chest discomfort [None]
  - Tinnitus [Recovering/Resolving]
  - Labelled drug-drug interaction medication error [None]
  - Amaurosis [Recovering/Resolving]
  - Cough [None]
  - Haemoglobin abnormal [None]
  - Gastrointestinal haemorrhage [Recovering/Resolving]
  - Faeces discoloured [Recovering/Resolving]
  - Hypotension [Recovering/Resolving]
  - Sudden hearing loss [Recovering/Resolving]

NARRATIVE: CASE EVENT DATE: 201709
